FAERS Safety Report 4903910-1 (Version None)
Quarter: 2006Q1

REPORT INFORMATION
  Report Type: 
  Country: None (occurrence: None)
  Receive Date: 20060208
  Receipt Date: 20050725
  Transmission Date: 20060701
  Serious: No
  Sender: FDA-Public Use
  Company Number: US-GLAXOSMITHKLINE-A0567560A

PATIENT
  Age: 30 Year
  Sex: Female

DRUGS (2)
  1. PAROXETINE HCL [Suspect]
     Dosage: 10MG PER DAY
     Route: 048
     Dates: start: 20050723
  2. PAXIL [Suspect]
     Route: 048

REACTIONS (5)
  - COLD SWEAT [None]
  - DRUG ADMINISTRATION ERROR [None]
  - HEART RATE INCREASED [None]
  - INSOMNIA [None]
  - SOMNOLENCE [None]
